FAERS Safety Report 18671470 (Version 2)
Quarter: 2021Q1

REPORT INFORMATION
  Report Type: Report from Study
  Country: MY (occurrence: MY)
  Receive Date: 20201228
  Receipt Date: 20210202
  Transmission Date: 20210419
  Serious: Yes (Other)
  Sender: FDA-Public Use
  Company Number: MY-PFIZER INC-2020485904

PATIENT
  Age: 64 Year
  Sex: Female

DRUGS (2)
  1. TALAZOPARIB. [Suspect]
     Active Substance: TALAZOPARIB
     Dosage: 1 MG, 1X/DAY
     Route: 048
     Dates: start: 20200724
  2. PANTAZ [Concomitant]
     Indication: ABDOMINAL PAIN UPPER
     Dosage: 40 MG, 1X/DAY
     Route: 048
     Dates: start: 20201104, end: 20201111

REACTIONS (2)
  - Haemoglobin decreased [Recovering/Resolving]
  - Neutrophil count decreased [Recovering/Resolving]
